FAERS Safety Report 24039025 (Version 1)
Quarter: 2024Q3

REPORT INFORMATION
  Report Type: Spontaneous
  Country: US (occurrence: US)
  Receive Date: 20240702
  Receipt Date: 20240702
  Transmission Date: 20241017
  Serious: No
  Sender: ABBVIE
  Company Number: US-ABBVIE-5817014

PATIENT
  Age: 28 Year
  Sex: Female

DRUGS (1)
  1. SKYRIZI [Suspect]
     Active Substance: RISANKIZUMAB-RZAA
     Indication: Crohn^s disease
     Route: 042
     Dates: start: 202403

REACTIONS (3)
  - Rash macular [Recovering/Resolving]
  - Dry mouth [Recovered/Resolved]
  - Dyschromatopsia [Recovered/Resolved]

NARRATIVE: CASE EVENT DATE: 20240501
